FAERS Safety Report 4709459-3 (Version None)
Quarter: 2005Q3

REPORT INFORMATION
  Report Type: 
  Country: None (occurrence: None)
  Receive Date: 20050708
  Receipt Date: 20050630
  Transmission Date: 20060218
  Serious: Yes (Hospitalization)
  Sender: FDA-Public Use
  Company Number: GB-GLAXOSMITHKLINE-B0386419A

PATIENT
  Age: 42 Year
  Sex: Female

DRUGS (1)
  1. ZYBAN [Suspect]
     Route: 048
     Dates: start: 20050516, end: 20050621

REACTIONS (7)
  - ANGINA PECTORIS [None]
  - BRADYCARDIA [None]
  - CHEST PAIN [None]
  - CHEST WALL PAIN [None]
  - CHOLELITHIASIS [None]
  - CONSTIPATION [None]
  - HEPATIC PAIN [None]
